FAERS Safety Report 6204655-0 (Version None)
Quarter: 2009Q2

REPORT INFORMATION
  Report Type: 
  Country: None (occurrence: None)
  Receive Date: 20090527
  Receipt Date: 20090515
  Transmission Date: 20091009
  Serious: Yes (Other)
  Sender: FDA-Public Use
  Company Number: DK-PFIZER INC-2009216612

PATIENT
  Age: 71 Year

DRUGS (4)
  1. TOLTERODINE TARTRATE [Suspect]
     Indication: URGE INCONTINENCE
  2. VAGIFEM [Concomitant]
  3. VITAMINS [Concomitant]
  4. CALCIUM [Concomitant]

REACTIONS (1)
  - BLOOD URINE PRESENT [None]
